FAERS Safety Report 4297675-7 (Version None)
Quarter: 2004Q1

REPORT INFORMATION
  Report Type: 
  Country: None (occurrence: None)
  Receive Date: 20040126
  Receipt Date: 20031103
  Transmission Date: 20041129
  Serious: No
  Sender: FDA-Public Use
  Company Number: USA031151461

PATIENT
  Age: 17 Year
  Sex: Female
  Weight: 58 kg

DRUGS (2)
  1. STRATTERA [Suspect]
     Indication: ANXIETY
     Dosage: 40 MG/DAY
     Dates: start: 20031103
  2. STRATTERA [Suspect]
     Indication: ATTENTION DEFICIT/HYPERACTIVITY DISORDER
     Dosage: 40 MG/DAY
     Dates: start: 20031103

REACTIONS (6)
  - DIZZINESS [None]
  - MYDRIASIS [None]
  - NAUSEA [None]
  - PALLOR [None]
  - PARAESTHESIA [None]
  - SOMNOLENCE [None]
